FAERS Safety Report 8957361 (Version 2)
Quarter: 2013Q1

REPORT INFORMATION
  Report Type: Spontaneous
  Country: US (occurrence: None)
  Receive Date: 20121128
  Receipt Date: 20121210
  Transmission Date: 20140127
  Serious: Yes (Hospitalization)
  Sender: FDA-Public Use
  Company Number: 2012-7811

PATIENT
  Age: 34 Year
  Sex: Male

DRUGS (6)
  1. SOMATULINE DEPOT INJECTION (60MG) (SOMATULINE) [Suspect]
     Indication: ACROMEGALY
     Dosage: (1 IN 28 D)
     Route: 058
     Dates: start: 20121102
  2. STEROIDS [Suspect]
     Indication: URTICARIA
     Dates: start: 20121011, end: 20121011
  3. STEROIDS [Suspect]
     Indication: DYSPNOEA
     Dates: start: 20121011, end: 20121011
  4. STEROIDS [Suspect]
     Indication: HYPOTENSION
     Dates: start: 20121011, end: 20121011
  5. SOMAVERT (PEGVISOMANT) [Concomitant]
  6. ANTIHISTAMINES (PEGVISOMANT) [Concomitant]

REACTIONS (4)
  - Urticaria [None]
  - Hypotension [None]
  - Dyspnoea [None]
  - Blood glucose increased [None]
